FAERS Safety Report 9126244 (Version 1)
Quarter: 2013Q1

REPORT INFORMATION
  Report Type: Spontaneous
  Country: US (occurrence: US)
  Receive Date: 20130117
  Receipt Date: 20130117
  Transmission Date: 20140127
  Serious: Yes (Life-Threatening, Other)
  Sender: FDA-Public Use
  Company Number: US-GLAXOSMITHKLINE-A1008013A

PATIENT
  Age: 80 Year
  Sex: Female

DRUGS (10)
  1. PROMACTA [Suspect]
     Indication: IDIOPATHIC THROMBOCYTOPENIC PURPURA
     Dosage: 50MG PER DAY
     Route: 048
  2. ALBUTEROL [Concomitant]
  3. ASPIRIN WITH CODEINE [Concomitant]
  4. FLONASE [Concomitant]
  5. LASIX [Concomitant]
  6. LEVOTHYROXINE [Concomitant]
  7. METOPROLOL [Concomitant]
  8. SENNA [Concomitant]
  9. SPIRIVA [Concomitant]
  10. DSS [Concomitant]

REACTIONS (2)
  - Drug ineffective [Unknown]
  - Platelet count decreased [Unknown]
